FAERS Safety Report 16270449 (Version 1)
Quarter: 2019Q2

REPORT INFORMATION
  Report Type: Spontaneous
  Country: US (occurrence: US)
  Receive Date: 20190503
  Receipt Date: 20190503
  Transmission Date: 20190711
  Serious: No
  Sender: FDA-Public Use
  Company Number: US-BAYER-2019-088842

PATIENT
  Age: 23 Year
  Sex: Male
  Weight: 73 kg

DRUGS (1)
  1. LOTRIMIN ULTRA ANTIFUNGAL [Suspect]
     Active Substance: BUTENAFINE HYDROCHLORIDE
     Indication: THERAPEUTIC SKIN CARE TOPICAL
     Dosage: 2 DF, QD
     Route: 061
     Dates: start: 20190419, end: 20190424

REACTIONS (2)
  - Erythema [Unknown]
  - Rash [Unknown]
